FAERS Safety Report 16084845 (Version 1)
Quarter: 2019Q1

REPORT INFORMATION
  Report Type: Spontaneous
  Country: US (occurrence: US)
  Receive Date: 20190318
  Receipt Date: 20190318
  Transmission Date: 20190418
  Serious: No
  Sender: FDA-Public Use
  Company Number: US-AVADEL SPECIALTY PHARMACEUTICALS, LLC-2018AVA00524

PATIENT
  Age: 87 Year
  Sex: Male
  Weight: 63.49 kg

DRUGS (8)
  1. FLOMAX [Concomitant]
     Active Substance: TAMSULOSIN HYDROCHLORIDE
  2. FINASTERIDE. [Concomitant]
     Active Substance: FINASTERIDE
  3. ATORVASTATIN [Concomitant]
     Active Substance: ATORVASTATIN
  4. NOCTIVA [Suspect]
     Active Substance: DESMOPRESSIN ACETATE
     Dosage: 0.83 ?G, 1X/DAY APPROXIMATELY 30 MINUTES BEFORE BEDTIME
     Route: 045
     Dates: start: 201810, end: 201812
  5. MACROBID [Concomitant]
     Active Substance: NITROFURANTOIN\NITROFURANTOIN MONOHYDRATE
  6. NOCTIVA [Suspect]
     Active Substance: DESMOPRESSIN ACETATE
     Indication: NOCTURIA
     Dosage: 1.66 ?G (TWO PUMPS), 1X/DAY APPROXIMATELY 30 MINUTES BEFORE BEDTIME
     Route: 045
     Dates: start: 201810, end: 201812
  7. ELIQUIS [Concomitant]
     Active Substance: APIXABAN
  8. PLAVIX [Concomitant]
     Active Substance: CLOPIDOGREL BISULFATE

REACTIONS (4)
  - Malaise [Not Recovered/Not Resolved]
  - Drug ineffective [Recovered/Resolved]
  - Product preparation issue [Recovered/Resolved]
  - Incorrect dose administered [Recovered/Resolved]

NARRATIVE: CASE EVENT DATE: 201810
